FAERS Safety Report 5848856-X (Version None)
Quarter: 2008Q3

REPORT INFORMATION
  Report Type: 
  Country: None (occurrence: None)
  Receive Date: 20080818
  Receipt Date: 20080808
  Transmission Date: 20090109
  Serious: Yes (Other)
  Sender: FDA-Public Use
  Company Number: FR-PFIZER INC-2008060413

PATIENT
  Age: 39 Year
  Sex: Female

DRUGS (8)
  1. IRINOTECAN HCL [Suspect]
     Indication: ENDOMETRIAL CANCER
  2. IRINOTECAN HCL [Suspect]
     Indication: COLON CANCER
  3. OXALIPLATIN [Suspect]
     Indication: ENDOMETRIAL CANCER
  4. OXALIPLATIN [Suspect]
     Indication: COLON CANCER
  5. ONDANSETRON [Concomitant]
  6. METOCLOPRAMIDE [Concomitant]
  7. ATROPINE [Concomitant]
     Route: 058
  8. NICARDIPINE HYDROCHLORIDE [Concomitant]

REACTIONS (1)
  - DYSARTHRIA [None]
